FAERS Safety Report 9107495 (Version 1)
Quarter: 2013Q1

REPORT INFORMATION
  Report Type: Spontaneous
  Country: TR (occurrence: TR)
  Receive Date: 20130221
  Receipt Date: 20130221
  Transmission Date: 20140127
  Serious: Yes (Other)
  Sender: FDA-Public Use
  Company Number: TR-VERTEX PHARMACEUTICALS INC.-2013-002499

PATIENT
  Age: 60 Year
  Sex: Female

DRUGS (4)
  1. RIBAVIRINE [Suspect]
     Indication: CHRONIC HEPATITIS C
     Dosage: DOSAGE FORM: UNSPECIFIED
     Route: 065
  2. PEGINTERFERON ALFA [Suspect]
     Indication: CHRONIC HEPATITIS C
     Dosage: DOSAGE FORM: UNSPECIFIED
     Route: 065
  3. COUMADINE [Concomitant]
     Indication: MITRAL VALVE REPLACEMENT
     Dosage: DOSAGE FORM: UNSPECIFIED
     Route: 065
  4. INCIVO [Suspect]
     Indication: CHRONIC HEPATITIS C
     Route: 048

REACTIONS (3)
  - Neutropenia [Unknown]
  - Anaemia [Unknown]
  - Anal pruritus [Unknown]
